FAERS Safety Report 4869275-9 (Version None)
Quarter: 2005Q4

REPORT INFORMATION
  Report Type: 
  Country: None (occurrence: None)
  Receive Date: 20051228
  Receipt Date: 20051216
  Transmission Date: 20060501
  Serious: Yes (Life-Threatening, Other)
  Sender: FDA-Public Use
  Company Number: HQWYE072316DEC05

PATIENT
  Age: 83 Year
  Sex: Female

DRUGS (1)
  1. PANTOPRAZOLE SODIUM [Suspect]
     Indication: PROPHYLAXIS
     Dosage: 20 MG 1X PER 1 DAY ORAL
     Route: 048
     Dates: start: 20051025, end: 20051027

REACTIONS (3)
  - DRUG INEFFECTIVE [None]
  - GASTROINTESTINAL ULCER [None]
  - MELAENA [None]
